FAERS Safety Report 8386134-8 (Version None)
Quarter: 2012Q2

REPORT INFORMATION
  Report Type: 
  Country: None (occurrence: None)
  Receive Date: 20120525
  Receipt Date: 20120511
  Transmission Date: 20120825
  Serious: Yes (Hospitalization)
  Sender: FDA-Public Use
  Company Number: NG-RANBAXY-2012R1-56416

PATIENT
  Age: 30 Year
  Sex: Male

DRUGS (2)
  1. PENTAZOCINE LACTATE [Suspect]
     Indication: MOOD ALTERED
     Dosage: 30-90 MG/DAY
     Route: 030
  2. PENTAZOCINE LACTATE [Suspect]
     Dosage: UNK
     Route: 030

REACTIONS (2)
  - CELLULITIS [None]
  - DRUG DEPENDENCE [None]
